FAERS Safety Report 11599386 (Version 1)
Quarter: 2015Q3

REPORT INFORMATION
  Report Type: Spontaneous
  Country: US (occurrence: US)
  Receive Date: 20150916
  Receipt Date: 20150916
  Transmission Date: 20151125
  Serious: No
  Sender: FDA-Public Use
  Company Number: US-ELI_LILLY_AND_COMPANY-US200711006023

PATIENT
  Age: 58 Year
  Sex: Female
  Weight: 49.43 kg

DRUGS (5)
  1. LIPITOR [Concomitant]
     Active Substance: ATORVASTATIN CALCIUM
     Dosage: 10 MG, UNK
  2. MULTIVITAMIN [Concomitant]
     Active Substance: VITAMINS
  3. FORTEO [Suspect]
     Active Substance: TERIPARATIDE
     Indication: BONE DENSITY DECREASED
     Dosage: 20 UG, DAILY (1/D)
     Dates: start: 20071031
  4. CALCIUM W/VITAMIN D NOS [Concomitant]
     Active Substance: CALCIUM\VITAMIN D
     Dosage: 600 MG, 2/D
  5. ESTRADIOL. [Concomitant]
     Active Substance: ESTRADIOL
     Dosage: 0.5 MG, UNK

REACTIONS (3)
  - Vulvovaginal discomfort [Not Recovered/Not Resolved]
  - Urine abnormality [Not Recovered/Not Resolved]
  - Myalgia [Not Recovered/Not Resolved]

NARRATIVE: CASE EVENT DATE: 20071113
